FAERS Safety Report 7940155-5 (Version None)
Quarter: 2011Q4

REPORT INFORMATION
  Report Type: 
  Country: None (occurrence: None)
  Receive Date: 20111125
  Receipt Date: 20050530
  Transmission Date: 20120403
  Serious: Yes (Other)
  Sender: FDA-Public Use
  Company Number: PHHY2005BR006945

PATIENT
  Sex: Female
  Weight: 75 kg

DRUGS (4)
  1. CLOPIDOGREL BISULFATE [Concomitant]
     Dosage: 75 MG, UNK
  2. EXFORGE [Suspect]
     Indication: HYPERTENSION
     Dosage: 1 DF, QD
     Route: 048
     Dates: start: 20030101, end: 20050301
  3. LEVOTHYROXINE SODIUM [Concomitant]
     Indication: HYPOTHYROIDISM
     Dosage: 100 MG, QD
  4. SOTALOL HYDROCHLORIDE [Concomitant]
     Dosage: 160 MG, UNK

REACTIONS (1)
  - BLOOD PRESSURE INCREASED [None]
